FAERS Safety Report 8379900-6 (Version None)
Quarter: 2012Q2

REPORT INFORMATION
  Report Type: 
  Country: None (occurrence: None)
  Receive Date: 20120523
  Receipt Date: 20120515
  Transmission Date: 20120825
  Serious: Yes (Other)
  Sender: FDA-Public Use
  Company Number: FR-UCBSA-057464

PATIENT
  Age: 73 Year
  Sex: Male

DRUGS (3)
  1. KEPPRA [Suspect]
     Route: 048
     Dates: start: 20120213, end: 20120101
  2. KEPPRA [Suspect]
     Route: 048
     Dates: start: 20120101
  3. RIFAMPIN AND ISONIAZID [Suspect]
     Dosage: STRENGTH: 300 MG/150 MG
     Route: 048
     Dates: start: 20120313

REACTIONS (3)
  - ARTERIAL INSUFFICIENCY [None]
  - PAPILLOEDEMA [None]
  - CEREBROVASCULAR ACCIDENT [None]
